FAERS Safety Report 4987886-7 (Version None)
Quarter: 2006Q2

REPORT INFORMATION
  Report Type: 
  Country: None (occurrence: None)
  Receive Date: 20060424
  Receipt Date: 20060407
  Transmission Date: 20061013
  Serious: Yes (Death)
  Sender: FDA-Public Use
  Company Number: ES200604002458

PATIENT
  Age: 36 Year
  Sex: Female

DRUGS (3)
  1. CYMBALTA [Suspect]
     Indication: DEPRESSION
     Dosage: 60 MG, DAILY (1/D), ORAL
     Route: 048
     Dates: start: 20060223, end: 20060302
  2. SINOGAN              (LEVOMEPROMAZINE) [Concomitant]
  3. TRANXILIUM                   /GFR/ (CLORAZEPATE DIPOTASSIUM) [Concomitant]

REACTIONS (2)
  - SEPSIS [None]
  - URINARY TRACT INFECTION [None]
